FAERS Safety Report 5464858-X (Version None)
Quarter: 2007Q3

REPORT INFORMATION
  Report Type: 
  Country: None (occurrence: None)
  Receive Date: 20070921
  Receipt Date: 20070911
  Transmission Date: 20080115
  Serious: Yes (Hospitalization)
  Sender: FDA-Public Use
  Company Number: GB-PFIZER INC-2007076106

PATIENT
  Sex: Female

DRUGS (2)
  1. GABAPENTIN [Suspect]
  2. LIPITOR [Suspect]
     Dosage: DAILY DOSE:80MG
     Route: 048

REACTIONS (1)
  - HEPATIC FAILURE [None]
